FAERS Safety Report 8773573 (Version 1)
Quarter: 2012Q4

REPORT INFORMATION
  Report Type: 
  Country: US (occurrence: US)
  Receive Date: 20120907
  Receipt Date: 20120907
  Transmission Date: 20130627
  Serious: Yes (Death, Other)
  Sender: FDA-Public Use
  Company Number: US-JNJFOC-20120901897

PATIENT

DRUGS (2)
  1. CYCLOBENZAPRINE [Suspect]
     Indication: MUSCLE RELAXANT THERAPY
     Route: 065
  2. CARISOPRODOL [Suspect]
     Indication: HYPOTONIA
     Route: 065

REACTIONS (11)
  - Death [Fatal]
  - Toxicity to various agents [Unknown]
  - Coma [Unknown]
  - Depressed level of consciousness [Unknown]
  - Respiratory failure [Unknown]
  - Rhabdomyolysis [Unknown]
  - Delirium [Unknown]
  - Acute coronary syndrome [Unknown]
  - Pneumonia aspiration [Unknown]
  - Intentional overdose [Unknown]
  - Accidental overdose [Unknown]
